FAERS Safety Report 6978308-5 (Version None)
Quarter: 2010Q3

REPORT INFORMATION
  Report Type: 
  Country: None (occurrence: None)
  Receive Date: 20100913
  Receipt Date: 20100831
  Transmission Date: 20110219
  Serious: Yes (Death)
  Sender: FDA-Public Use
  Company Number: US-ELI_LILLY_AND_COMPANY-US201009000258

PATIENT
  Age: 38 Year
  Sex: Male

DRUGS (6)
  1. SYMBYAX [Suspect]
     Indication: DEPRESSION
     Dosage: 1 D/F, UNKNOWN
     Route: 065
     Dates: start: 20100712, end: 20100723
  2. ZYPREXA [Suspect]
     Indication: DEPRESSION
     Dosage: 5 MG, UNK
     Dates: start: 20100726
  3. FLUOXETINE HYDROCHLORIDE [Suspect]
     Indication: DEPRESSION
     Dosage: 20 MG, UNK
     Dates: start: 20100726
  4. MOBIC [Concomitant]
     Dosage: 15 MG, UNK
     Dates: start: 20100811
  5. AMBIEN [Concomitant]
     Dosage: 10 MG, UNK
     Dates: start: 20100426
  6. HYDROCODONE [Concomitant]
     Dosage: 1 D/F, UNK
     Dates: start: 20100426

REACTIONS (2)
  - COMPLETED SUICIDE [None]
  - GUN SHOT WOUND [None]
